FAERS Safety Report 14115998 (Version 2)
Quarter: 2018Q1

REPORT INFORMATION
  Report Type: Spontaneous
  Country: JP (occurrence: JP)
  Receive Date: 20171023
  Receipt Date: 20180302
  Transmission Date: 20180508
  Serious: Yes (Death)
  Sender: FDA-Public Use
  Company Number: JP-JT-EVA201702838KERYXP-001

PATIENT
  Age: 69 Year
  Sex: Female

DRUGS (1)
  1. RIONA [Suspect]
     Active Substance: FERRIC CITRATE ANHYDROUS
     Indication: HYPERPHOSPHATAEMIA
     Dosage: UNK
     Route: 048

REACTIONS (4)
  - Cerebral haemorrhage [Fatal]
  - Intestinal ulcer [Fatal]
  - Large intestine perforation [Fatal]
  - Sepsis [Fatal]

NARRATIVE: CASE EVENT DATE: 201512
